FAERS Safety Report 13763869 (Version 1)
Quarter: 2017Q3

REPORT INFORMATION
  Report Type: Spontaneous
  Country: ES (occurrence: ES)
  Receive Date: 20170718
  Receipt Date: 20170718
  Transmission Date: 20171127
  Serious: Yes (Other)
  Sender: FDA-Public Use
  Company Number: ES-HERITAGE PHARMACEUTICALS-2017HTG00183

PATIENT
  Age: 41 Year
  Sex: Male

DRUGS (2)
  1. PAROMOMYCIN SULFATE. [Suspect]
     Active Substance: PAROMOMYCIN SULFATE
     Indication: VISCERAL LEISHMANIASIS
     Dosage: 1500 MG, 1X/DAY
     Route: 030
  2. MILTEFOSINE [Concomitant]
     Active Substance: MILTEFOSINE
     Dosage: 50 MG/12 HOURS ^VO^
     Route: 065

REACTIONS (1)
  - Deafness [Not Recovered/Not Resolved]
